FAERS Safety Report 9171708 (Version 2)
Quarter: 2013Q1

REPORT INFORMATION
  Report Type: Spontaneous
  Country: MY (occurrence: None)
  Receive Date: 20130204
  Receipt Date: 20130307
  Transmission Date: 20140127
  Serious: Yes (Hospitalization)
  Sender: FDA-Public Use
  Company Number: AEMYS201300034

PATIENT
  Age: 43 Year
  Sex: Male
  Weight: 63 kg

DRUGS (1)
  1. ALBUTEIN [Suspect]
     Indication: HYPOALBUMINAEMIA
     Route: 042
     Dates: start: 20130119, end: 20130120

REACTIONS (3)
  - Acute respiratory distress syndrome [None]
  - Chills [None]
  - Pyrexia [None]
